FAERS Safety Report 7956358-X (Version None)
Quarter: 2011Q4

REPORT INFORMATION
  Report Type: 
  Country: None (occurrence: None)
  Receive Date: 20111125
  Receipt Date: 20111108
  Transmission Date: 20120403
  Serious: Yes (Other)
  Sender: FDA-Public Use
  Company Number: 2011PROUSA00767

PATIENT
  Age: 63 Year
  Sex: Male
  Weight: 136.5 kg

DRUGS (12)
  1. PROVENGE [Suspect]
     Indication: PROSTATE CANCER METASTATIC
     Dosage: 250 ML, SINGLE, INTRAVENOUS
     Route: 042
     Dates: start: 20111028, end: 20111028
  2. CRESTOR [Concomitant]
  3. CHOLECALCIFEROL (COLECALCIFEROL) [Concomitant]
  4. VITAMIN TAB [Concomitant]
  5. LISINOPRIL [Concomitant]
  6. NIACIN [Concomitant]
  7. ABILIFY [Concomitant]
  8. ATENOLOL [Concomitant]
  9. ASCORBIC ACID [Concomitant]
  10. AMLODIPINE BESYLATE [Concomitant]
  11. FISH OIL (FISH OIL) [Concomitant]
  12. FLUTAMIDE [Concomitant]

REACTIONS (2)
  - DYSARTHRIA [None]
  - CONFUSIONAL STATE [None]
